FAERS Safety Report 9311551 (Version 1)
Quarter: 2013Q2

REPORT INFORMATION
  Report Type: Spontaneous
  Country: IT (occurrence: IT)
  Receive Date: 20130528
  Receipt Date: 20130528
  Transmission Date: 20140414
  Serious: Yes (Hospitalization)
  Sender: FDA-Public Use
  Company Number: IT-PFIZER INC-2013160145

PATIENT
  Age: 74 Year
  Sex: Female
  Weight: 46 kg

DRUGS (4)
  1. MEDROL [Suspect]
     Indication: SARCOIDOSIS
     Dosage: 16 MG, 1X/DAY
     Route: 048
     Dates: start: 20111201
  2. LASIX [Concomitant]
  3. TRIATEC [Concomitant]
  4. DILZENE [Concomitant]

REACTIONS (2)
  - Diabetes mellitus [Recovered/Resolved with Sequelae]
  - Intraocular pressure increased [Recovered/Resolved with Sequelae]
